FAERS Safety Report 7023856-5 (Version None)
Quarter: 2010Q4

REPORT INFORMATION
  Report Type: 
  Country: None (occurrence: None)
  Receive Date: 20101001
  Receipt Date: 20100412
  Transmission Date: 20110411
  Serious: Yes (Other)
  Sender: FDA-Public Use
  Company Number: US-ASTRAZENECA-2006UW08064

PATIENT
  Age: 17024 Day
  Sex: Male

DRUGS (5)
  1. SEROQUEL [Suspect]
     Indication: AFFECTIVE DISORDER
     Route: 048
     Dates: start: 20011015
  2. SEROQUEL [Suspect]
     Indication: PSYCHOTIC DISORDER
     Route: 048
     Dates: start: 20011015
  3. THORAZINE [Concomitant]
     Indication: SLEEP DISORDER
     Dates: start: 20001107
  4. NEURONTIN [Concomitant]
  5. PROZAC [Concomitant]
     Indication: DEPRESSION
     Dates: start: 20011015

REACTIONS (5)
  - DIABETES MELLITUS [None]
  - DIABETIC NEUROPATHY [None]
  - MULTIPLE INJURIES [None]
  - NEURALGIA [None]
  - TYPE 1 DIABETES MELLITUS [None]
